FAERS Safety Report 9457613 (Version 1)
Quarter: 2013Q3

REPORT INFORMATION
  Report Type: Spontaneous
  Country: US (occurrence: None)
  Receive Date: 20130812
  Receipt Date: 20130812
  Transmission Date: 20140515
  Serious: No
  Sender: FDA-Public Use
  Company Number: None

PATIENT
  Age: 52 Year
  Sex: Male
  Weight: 92.99 kg

DRUGS (1)
  1. ALLOPURINOL [Suspect]
     Indication: GOUTY ARTHRITIS
     Route: 048
     Dates: start: 20130124, end: 20130612

REACTIONS (5)
  - Arthralgia [None]
  - Arthralgia [None]
  - Musculoskeletal pain [None]
  - Neck pain [None]
  - Arthralgia [None]
